FAERS Safety Report 5565907-0 (Version None)
Quarter: 2007Q4

REPORT INFORMATION
  Report Type: 
  Country: None (occurrence: None)
  Receive Date: 20071213
  Receipt Date: 20071204
  Transmission Date: 20080405
  Serious: No
  Sender: FDA-Public Use
  Company Number: 2007-168634-NL

PATIENT
  Age: 44 Year
  Sex: Female

DRUGS (1)
  1. ETONOGESTREL [Suspect]
     Dosage: DF
     Route: 059
     Dates: start: 20050101

REACTIONS (1)
  - INTRACRANIAL ANEURYSM [None]
